FAERS Safety Report 24815712 (Version 1)
Quarter: 2025Q1

REPORT INFORMATION
  Report Type: Spontaneous
  Country: US (occurrence: US)
  Receive Date: 20250107
  Receipt Date: 20250107
  Transmission Date: 20250409
  Serious: No
  Sender: PFIZER
  Company Number: US-PFIZER INC-PV202500000552

PATIENT
  Age: 67 Year
  Sex: Female
  Weight: 109.3 kg

DRUGS (1)
  1. AROMASIN [Suspect]
     Active Substance: EXEMESTANE
     Dosage: AROMASIN 25 MG QO,D

REACTIONS (2)
  - Neoplasm progression [Recovering/Resolving]
  - Off label use [Unknown]
